FAERS Safety Report 6657189-3 (Version None)
Quarter: 2010Q1

REPORT INFORMATION
  Report Type: 
  Country: None (occurrence: None)
  Receive Date: 20100330
  Receipt Date: 20100324
  Transmission Date: 20100710
  Serious: Yes (Hospitalization)
  Sender: FDA-Public Use
  Company Number: US-TEVA-206145USA

PATIENT
  Sex: Male

DRUGS (1)
  1. PROPOFOL [Suspect]
     Indication: ANAESTHESIA
     Route: 042
     Dates: start: 20090730, end: 20090730

REACTIONS (3)
  - LABORATORY TEST ABNORMAL [None]
  - MUSCLE INJURY [None]
  - PAIN IN EXTREMITY [None]
